FAERS Safety Report 8801382 (Version 1)
Quarter: 2012Q4

REPORT INFORMATION
  Report Type: 
  Country: CN (occurrence: CN)
  Receive Date: 20120921
  Receipt Date: 20120921
  Transmission Date: 20130627
  Serious: Yes (Life-Threatening)
  Sender: FDA-Public Use
  Company Number: CN-ABBOTT-12P-035-0981098-00

PATIENT
  Sex: Male
  Weight: 24 kg

DRUGS (1)
  1. ISOFLURANE [Suspect]
     Indication: GENERAL ANAESTHESIA
     Dosage: 2.00% daily
     Route: 055
     Dates: start: 20090203, end: 20090203

REACTIONS (3)
  - Hypercapnia [Recovered/Resolved]
  - Pyrexia [Recovered/Resolved]
  - Hyperthermia malignant [Recovered/Resolved]
